FAERS Safety Report 23242099 (Version 1)
Quarter: 2023Q4

REPORT INFORMATION
  Report Type: Spontaneous
  Country: US (occurrence: None)
  Receive Date: 20231129
  Receipt Date: 20231129
  Transmission Date: 20240110
  Serious: Yes (Death)
  Sender: FDA-Public Use
  Company Number: None

PATIENT
  Age: 91 Year
  Sex: Female

DRUGS (1)
  1. PROLIA [Suspect]
     Active Substance: DENOSUMAB
     Dosage: OTHER FREQUENCY : EVERY 6 MONTHS;?OTHER ROUTE : UNDER THE SKIN;?
     Route: 050
     Dates: start: 20211206, end: 20231128

REACTIONS (1)
  - Death [None]

NARRATIVE: CASE EVENT DATE: 20231128
